FAERS Safety Report 9351616 (Version 2)
Quarter: 2013Q3

REPORT INFORMATION
  Report Type: Spontaneous
  Country: AT (occurrence: AT)
  Receive Date: 20130617
  Receipt Date: 20130701
  Transmission Date: 20140515
  Serious: Yes (Hospitalization)
  Sender: FDA-Public Use
  Company Number: AT-PFIZER INC-2013176016

PATIENT
  Age: 49 Year
  Sex: Female

DRUGS (3)
  1. SERTRALINE HCL [Suspect]
     Dosage: 150 UNK, 1X/DAY
     Dates: end: 20130130
  2. MIRTABENE [Suspect]
     Dosage: 45 UNK, 1X/DAY
     Dates: end: 20130130
  3. TRITTICO [Suspect]
     Dosage: 100 UNK, 1X/DAY
     Dates: end: 20130130

REACTIONS (3)
  - Mania [Not Recovered/Not Resolved]
  - Psychotic disorder [Not Recovered/Not Resolved]
  - Personality disorder [Not Recovered/Not Resolved]
